FAERS Safety Report 5769797-2 (Version None)
Quarter: 2008Q2

REPORT INFORMATION
  Report Type: 
  Country: None (occurrence: None)
  Receive Date: 20080612
  Receipt Date: 20080404
  Transmission Date: 20081010
  Serious: No
  Sender: FDA-Public Use
  Company Number: US-ABBOTT-08P-163-0446004-00

PATIENT
  Sex: Female
  Weight: 74.91 kg

DRUGS (3)
  1. HUMIRA [Suspect]
     Indication: PSORIASIS
     Route: 058
     Dates: start: 20071201, end: 20080301
  2. HUMIRA [Suspect]
     Dosage: HUMIRA PEN
     Dates: start: 20080301
  3. FLOXITE [Concomitant]
     Indication: DEPRESSION
     Route: 048

REACTIONS (2)
  - RASH MACULAR [None]
  - RASH PRURITIC [None]
